FAERS Safety Report 9398371 (Version 1)
Quarter: 2013Q3

REPORT INFORMATION
  Report Type: Spontaneous
  Country: US (occurrence: US)
  Receive Date: 20130712
  Receipt Date: 20130712
  Transmission Date: 20140515
  Serious: No
  Sender: FDA-Public Use
  Company Number: US-GLAXOSMITHKLINE-A1009790A

PATIENT
  Sex: Female

DRUGS (5)
  1. FLOVENT [Suspect]
     Indication: BRONCHIAL HYPERREACTIVITY
     Dosage: 2PUFF TWICE PER DAY
     Route: 055
     Dates: start: 2010
  2. ADVAIR [Suspect]
     Indication: BRONCHIAL HYPERREACTIVITY
     Dosage: 1PUFF TWICE PER DAY
     Route: 055
     Dates: start: 201301, end: 201301
  3. VALIUM [Concomitant]
  4. CALCIUM SUPPLEMENT [Concomitant]
  5. VITAMIN D SUPPLEMENT [Concomitant]

REACTIONS (9)
  - Palpitations [Not Recovered/Not Resolved]
  - Cough [Unknown]
  - Dyspnoea [Unknown]
  - Chest pain [Unknown]
  - Chest discomfort [Unknown]
  - Asthenia [Unknown]
  - Tachycardia [Unknown]
  - Feeling abnormal [Unknown]
  - Product quality issue [Unknown]
